FAERS Safety Report 6901379-9 (Version None)
Quarter: 2010Q3

REPORT INFORMATION
  Report Type: 
  Country: None (occurrence: None)
  Receive Date: 20100708
  Receipt Date: 20100310
  Transmission Date: 20110219
  Serious: Yes (Other)
  Sender: FDA-Public Use
  Company Number: 2010020231

PATIENT
  Age: 34 Year
  Sex: Male
  Weight: 131 kg

DRUGS (7)
  1. CHANTIX [Suspect]
     Indication: SMOKING CESSATION THERAPY
     Dosage: 1 MG, 2X/DAY
     Dates: start: 20100102, end: 20100130
  2. LISINOPRIL [Concomitant]
  3. METFORMIN HCL [Concomitant]
  4. ASPIRIN [Concomitant]
  5. SOMA [Concomitant]
  6. ZYRTEC [Concomitant]
  7. COLCHICINE (COLCHICINE) [Concomitant]

REACTIONS (11)
  - ABNORMAL DREAMS [None]
  - ANXIETY [None]
  - HALLUCINATION [None]
  - HALLUCINATION, VISUAL [None]
  - HYPOAESTHESIA [None]
  - INSOMNIA [None]
  - NAUSEA [None]
  - SINUS CONGESTION [None]
  - TACHYPHRENIA [None]
  - TREMOR [None]
  - VOMITING [None]
